FAERS Safety Report 9881955 (Version 1)
Quarter: 2014Q1

REPORT INFORMATION
  Report Type: Spontaneous
  Country: US (occurrence: None)
  Receive Date: 20140205
  Receipt Date: 20140205
  Transmission Date: 20141002
  Serious: Yes (Death)
  Sender: FDA-Public Use
  Company Number: DEP_01888_2014

PATIENT
  Age: 37 Year
  Sex: Male

DRUGS (3)
  1. GABAPENTIN [Suspect]
     Indication: PRODUCT USED FOR UNKNOWN INDICATION
  2. DIAZEPAM [Suspect]
     Indication: PRODUCT USED FOR UNKNOWN INDICATION
     Route: 048
  3. FENTANYL [Suspect]
     Indication: PRODUCT USED FOR UNKNOWN INDICATION
     Dosage: 100UG/HR, 50UG/HR,75UG/HR, SC.
     Route: 048

REACTIONS (5)
  - Medication error [None]
  - Unresponsive to stimuli [None]
  - Cardiac arrest [None]
  - Respiratory arrest [None]
  - Toxicity to various agents [None]
